FAERS Safety Report 7803410-5 (Version None)
Quarter: 2011Q4

REPORT INFORMATION
  Report Type: 
  Country: None (occurrence: None)
  Receive Date: 20111007
  Receipt Date: 20110930
  Transmission Date: 20120403
  Serious: Yes (Hospitalization, Other)
  Sender: FDA-Public Use
  Company Number: JP-AMGEN-JPNCT2010011960

PATIENT
  Age: 66 Year
  Sex: Male
  Weight: 70 kg

DRUGS (16)
  1. DECADRON [Concomitant]
     Dosage: UNK
     Route: 042
  2. ANOPROLIN [Concomitant]
     Dosage: UNK
     Route: 048
  3. LYRICA [Concomitant]
     Dosage: UNK
     Route: 048
  4. MAGMITT [Concomitant]
     Dosage: UNK
     Route: 048
  5. OXALIPLATIN [Concomitant]
     Indication: COLORECTAL CANCER
     Route: 041
     Dates: start: 20100930
  6. METHYCOBAL [Concomitant]
     Route: 048
  7. CORTICOSTEROIDS [Concomitant]
     Indication: PROPHYLAXIS
     Dosage: UNK
     Route: 065
  8. PRIMPERAN TAB [Concomitant]
     Dosage: UNK
     Route: 042
  9. RABEPRAZOLE SODIUM [Concomitant]
     Dosage: UNK
     Route: 048
  10. PANITUMUMAB [Suspect]
     Indication: COLORECTAL CANCER
     Dosage: 6 MG/KG, Q2WK
     Route: 041
     Dates: start: 20100930
  11. LEVOLEUCOVORIN CALCIUM [Concomitant]
     Dosage: UNK
     Dates: start: 20100301, end: 20100301
  12. FLUOROURACIL [Concomitant]
     Indication: COLORECTAL CANCER
     Dosage: 400 MG/M2, Q2WK
     Route: 040
     Dates: start: 20100301, end: 20100301
  13. GRANISETRON [Concomitant]
     Dosage: UNK
     Route: 042
  14. FLUOROURACIL [Concomitant]
     Route: 041
     Dates: start: 20100930
  15. LEVOLEUCOVORIN CALCIUM [Concomitant]
     Indication: COLORECTAL CANCER
     Route: 041
     Dates: start: 20100930
  16. DAIKENTYUTO [Concomitant]
     Dosage: UNK
     Route: 048

REACTIONS (4)
  - DECREASED APPETITE [None]
  - MALAISE [None]
  - DERMATITIS ACNEIFORM [None]
  - HEPATIC ENCEPHALOPATHY [None]
